FAERS Safety Report 7934043-8 (Version None)
Quarter: 2011Q4

REPORT INFORMATION
  Report Type: 
  Country: None (occurrence: None)
  Receive Date: 20111122
  Receipt Date: 20091126
  Transmission Date: 20120403
  Serious: Yes (Other)
  Sender: FDA-Public Use
  Company Number: PHHY2010TW86874

PATIENT
  Sex: Female

DRUGS (4)
  1. GLEEVEC [Suspect]
     Dosage: 200 MG, UNK
     Route: 048
  2. GLEEVEC [Suspect]
     Indication: CHRONIC MYELOID LEUKAEMIA
     Dosage: 400 MG, UNK
     Route: 048
  3. GLEEVEC [Suspect]
     Dosage: 300 MG, UNK
  4. GLEEVEC [Suspect]
     Dosage: 400 MG, UNK
     Route: 048

REACTIONS (14)
  - VOMITING [None]
  - NAUSEA [None]
  - PROCTALGIA [None]
  - DEPRESSION [None]
  - DISCOMFORT [None]
  - ABDOMINAL PAIN [None]
  - WHITE BLOOD CELL COUNT DECREASED [None]
  - OEDEMA [None]
  - PLATELET COUNT DECREASED [None]
  - INSOMNIA [None]
  - HAEMORRHOIDS [None]
  - DECREASED APPETITE [None]
  - DIARRHOEA [None]
  - EYE OEDEMA [None]
